FAERS Safety Report 6503148-0 (Version None)
Quarter: 2009Q4

REPORT INFORMATION
  Report Type: 
  Country: None (occurrence: None)
  Receive Date: 20091217
  Receipt Date: 20091208
  Transmission Date: 20100525
  Serious: Yes (Hospitalization)
  Sender: FDA-Public Use
  Company Number: US-TYCO HEALTHCARE/MALLINCKRODT-T200901929

PATIENT
  Age: 38 Year
  Sex: Female

DRUGS (1)
  1. SODIUM IODIDE I 131 [Suspect]
     Indication: HYPERTHYROIDISM
     Dosage: 4 DOSES, AT THREE TO FOUR MONTH INTERVALS

REACTIONS (2)
  - HYPOTHYROIDISM [None]
  - TRANSIENT PSYCHOSIS [None]
